FAERS Safety Report 7565919-1 (Version None)
Quarter: 2011Q2

REPORT INFORMATION
  Report Type: 
  Country: None (occurrence: None)
  Receive Date: 20110623
  Receipt Date: 20110622
  Transmission Date: 20111010
  Serious: No
  Sender: FDA-Public Use
  Company Number: US-PFIZER INC-2011103651

PATIENT
  Sex: Female
  Weight: 51.701 kg

DRUGS (5)
  1. MIGRELIEF [Concomitant]
     Indication: MIGRAINE
     Dosage: UNK, 2X/DAY
     Dates: start: 20100101
  2. DIVALPROEX EXTENDED-RELEASE [Concomitant]
     Indication: MIGRAINE
     Dosage: 250MG DAILY
     Dates: start: 20110401
  3. VENLAFAXINE HYDROCHLORIDE [Suspect]
     Indication: MIGRAINE
     Dosage: UNK
     Route: 048
  4. FLUDROCORTISONE [Concomitant]
     Indication: BLOOD PRESSURE ABNORMAL
     Dosage: 0.5 MG, DAILY
     Dates: start: 20080101
  5. EFFEXOR XR [Suspect]
     Indication: MIGRAINE
     Dosage: ONE THIRD OF 37.5MG ONCE AT NIGHT
     Route: 048
     Dates: start: 20110510

REACTIONS (8)
  - WRONG TECHNIQUE IN DRUG USAGE PROCESS [None]
  - VISUAL IMPAIRMENT [None]
  - ASTHENIA [None]
  - NAUSEA [None]
  - MALAISE [None]
  - FEELING ABNORMAL [None]
  - HYPERHIDROSIS [None]
  - DIZZINESS [None]
